FAERS Safety Report 9675945 (Version 2)
Quarter: 2013Q4

REPORT INFORMATION
  Report Type: Spontaneous
  Country: CR (occurrence: CR)
  Receive Date: 20131107
  Receipt Date: 20131113
  Transmission Date: 20140711
  Serious: Yes (Death, Hospitalization)
  Sender: FDA-Public Use
  Company Number: CR-PFIZER INC-2013317875

PATIENT
  Age: 96 Year
  Sex: Female

DRUGS (2)
  1. LYRICA [Suspect]
     Indication: DIABETIC NEPHROPATHY
     Dosage: 150 MG, 2X/DAY
     Route: 048
     Dates: start: 20070101, end: 20130531
  2. COREG [Concomitant]
     Dosage: UNK
     Route: 048
     Dates: start: 20130101

REACTIONS (2)
  - Myocardial infarction [Fatal]
  - Renal failure [Fatal]
